FAERS Safety Report 7785680-5 (Version None)
Quarter: 2011Q3

REPORT INFORMATION
  Report Type: 
  Country: None (occurrence: None)
  Receive Date: 20110929
  Receipt Date: 20110929
  Transmission Date: 20111222
  Serious: Yes (Hospitalization)
  Sender: FDA-Public Use
  Company Number: None

PATIENT
  Age: 77 Year
  Sex: Female
  Weight: 67.131 kg

DRUGS (1)
  1. DICLOFENAC SODIUM [Suspect]
     Indication: SCIATICA
     Dosage: 1TABLET
     Dates: start: 20110425, end: 20110523

REACTIONS (5)
  - ATRIAL FIBRILLATION [None]
  - RENAL IMPAIRMENT [None]
  - TRANSIENT ISCHAEMIC ATTACK [None]
  - BLOOD PRESSURE INCREASED [None]
  - ELECTROLYTE IMBALANCE [None]
